FAERS Safety Report 9125411 (Version 2)
Quarter: 2013Q1

REPORT INFORMATION
  Report Type: Spontaneous
  Country: US (occurrence: US)
  Receive Date: 20130227
  Receipt Date: 20130321
  Transmission Date: 20140127
  Serious: Yes (Death)
  Sender: FDA-Public Use
  Company Number: US-GLAXOSMITHKLINE-A1013275A

PATIENT
  Age: 80 Year
  Sex: Male

DRUGS (2)
  1. ARIXTRA [Suspect]
     Indication: PULMONARY EMBOLISM
     Dosage: 7.5MG PER DAY
     Route: 058
     Dates: start: 201209, end: 201301
  2. UNSPECIFIED MEDICATIONS [Concomitant]

REACTIONS (1)
  - Pancreatic carcinoma [Fatal]
